FAERS Safety Report 21149642 (Version 1)
Quarter: 2022Q3

REPORT INFORMATION
  Report Type: Spontaneous
  Country: DE (occurrence: DE)
  Receive Date: 20220729
  Receipt Date: 20220729
  Transmission Date: 20221026
  Serious: Yes (Hospitalization, Other)
  Sender: FDA-Public Use
  Company Number: DE-PPDUS-2022ST000059

PATIENT
  Age: 80 Year
  Sex: Male

DRUGS (1)
  1. ELZONRIS [Suspect]
     Active Substance: TAGRAXOFUSP-ERZS
     Indication: Product used for unknown indication
     Route: 042

REACTIONS (7)
  - Adverse event [Unknown]
  - Disseminated intravascular coagulation [Unknown]
  - Septic shock [Unknown]
  - Inflammation [Unknown]
  - Pericardial effusion [Unknown]
  - Capillary leak syndrome [Unknown]
  - Pyrexia [Unknown]
